FAERS Safety Report 7857378 (Version 13)
Quarter: 2013Q3

REPORT INFORMATION
  Report Type: Report from Study
  Country: JP (occurrence: JP)
  Receive Date: 20110316
  Receipt Date: 20130822
  Transmission Date: 20140515
  Serious: Yes (Hospitalization)
  Sender: FDA-Public Use
  Company Number: JP-JNJFOC-20100700830

PATIENT
  Age: 35 Year
  Sex: Male
  Weight: 62 kg

DRUGS (27)
  1. INTELENCE [Suspect]
     Indication: HIV INFECTION
     Route: 048
     Dates: start: 20091229
  2. INTELENCE [Suspect]
     Indication: HIV INFECTION
     Route: 048
  3. EPZICOM [Suspect]
     Indication: HIV INFECTION
     Route: 048
  4. EPZICOM [Suspect]
     Indication: HIV INFECTION
     Route: 048
     Dates: start: 20091229
  5. ISENTRESS [Suspect]
     Indication: HIV INFECTION
     Route: 048
     Dates: start: 20091229
  6. ISENTRESS [Suspect]
     Indication: HIV INFECTION
     Route: 048
  7. EPIVIR [Concomitant]
     Indication: HIV INFECTION
     Route: 048
     Dates: start: 19990112, end: 20091228
  8. VIREAD [Concomitant]
     Indication: HIV INFECTION
     Route: 048
     Dates: start: 20041118, end: 20091228
  9. PEGINTERFERON ALFA-2A [Concomitant]
     Indication: HEPATITIS
     Route: 058
     Dates: start: 20090401, end: 20120528
  10. PEGINTERFERON ALFA-2A [Concomitant]
     Indication: HEPATITIS
     Route: 058
     Dates: start: 20120921
  11. PEGINTERFERON ALFA-2A [Concomitant]
     Indication: HEPATITIS
     Route: 058
     Dates: start: 20120529, end: 20120920
  12. KALETRA [Concomitant]
     Indication: HIV INFECTION
     Route: 048
     Dates: start: 20061101, end: 20091228
  13. KALETRA [Concomitant]
     Indication: HIV INFECTION
     Route: 048
     Dates: start: 20050113, end: 20061031
  14. CROSS EIGHT M [Concomitant]
     Indication: FACTOR VIII DEFICIENCY
     Route: 065
     Dates: start: 20120224
  15. CROSS EIGHT M [Concomitant]
     Indication: FACTOR VIII DEFICIENCY
     Route: 065
     Dates: start: 20110401, end: 20111220
  16. CROSS EIGHT M [Concomitant]
     Indication: FACTOR VIII DEFICIENCY
     Route: 065
     Dates: start: 20090401, end: 20111220
  17. URSO [Concomitant]
     Indication: LIVER DISORDER
     Route: 048
     Dates: start: 20111221
  18. URSO [Concomitant]
     Indication: LIVER DISORDER
     Route: 048
     Dates: start: 20090401, end: 20110930
  19. AMLODIN OD [Concomitant]
     Indication: HYPERTENSION
     Route: 048
     Dates: start: 20110304, end: 20110930
  20. AMLODIN OD [Concomitant]
     Indication: HYPERTENSION
     Route: 048
     Dates: start: 20120119
  21. BLOPRESS [Concomitant]
     Indication: HYPERTENSION
     Route: 048
     Dates: start: 20100315, end: 20111109
  22. BLOPRESS [Concomitant]
     Indication: HYPERTENSION
     Route: 048
     Dates: start: 200301, end: 20100304
  23. ECARD [Concomitant]
     Indication: HYPERTENSION
     Route: 048
     Dates: start: 20111104
  24. CALBLOCK [Concomitant]
     Indication: HYPERTENSION
     Route: 048
     Dates: start: 20111221, end: 20120116
  25. ZYLORIC [Concomitant]
     Indication: HYPERURICAEMIA
     Route: 048
     Dates: start: 20020709
  26. ZERIT [Concomitant]
     Indication: HIV INFECTION
     Route: 048
     Dates: start: 19990112, end: 20041117
  27. VIRACEPT [Concomitant]
     Indication: HIV INFECTION
     Route: 048
     Dates: start: 19990112, end: 20050112

REACTIONS (3)
  - Haemorrhagic diathesis [Recovered/Resolved]
  - Liver disorder [Not Recovered/Not Resolved]
  - Hyperuricaemia [Not Recovered/Not Resolved]
